FAERS Safety Report 5431705-1 (Version None)
Quarter: 2007Q3

REPORT INFORMATION
  Report Type: 
  Country: None (occurrence: None)
  Receive Date: 20070830
  Receipt Date: 20070829
  Transmission Date: 20080115
  Serious: Yes (Hospitalization)
  Sender: FDA-Public Use
  Company Number: FRWYE238029AUG07

PATIENT
  Age: 6 Year
  Sex: Male
  Weight: 35 kg

DRUGS (4)
  1. ADVIL LIQUI-GELS [Suspect]
     Dosage: UNKNOWN
     Route: 048
     Dates: start: 20070521
  2. PERFALGAN [Concomitant]
     Dosage: UNKNOWN
     Route: 042
     Dates: start: 20070521
  3. CLAFORAN [Concomitant]
     Dosage: UNKNOWN
     Route: 042
     Dates: start: 20070521
  4. VANCOMYCIN [Concomitant]
     Dosage: UNKNOWN
     Route: 042
     Dates: start: 20070521

REACTIONS (1)
  - PARAPHARYNGEAL ABSCESS [None]
